FAERS Safety Report 9450385 (Version 5)
Quarter: 2013Q4

REPORT INFORMATION
  Report Type: Spontaneous
  Country: IT (occurrence: None)
  Receive Date: 20130807
  Receipt Date: 20131028
  Transmission Date: 20140711
  Serious: Yes (Hospitalization)
  Sender: FDA-Public Use
  Company Number: AUR-APL-2013-06557

PATIENT
  Age: 65 Year
  Sex: Male

DRUGS (12)
  1. RAMIPRIL [Suspect]
     Indication: HYPERTENSION
     Dosage: 5 MG (5 MG, 1 IN 1 D), ORAL
     Route: 048
     Dates: start: 20080101, end: 20130625
  2. LASIX [Suspect]
     Indication: HYPERTENSION
     Dosage: 75 MG (25 MG, 3 IN 1 D), PO
     Dates: start: 20130501, end: 20130625
  3. ESKIM (OMEGA-3 TRIGLYCERIDES) [Concomitant]
  4. TORVAST (ATORVASTATIN CALCIUM) [Concomitant]
  5. LANTUS (INSULIN GLARGINE) [Concomitant]
  6. APIDRA (INSULIN GLULISINE) [Concomitant]
  7. CLEXANE (ENOXAPARIN SODIUM) [Concomitant]
  8. PANTOPRAZOLE SODIUM (PANTOPRAZOLE SODIUM SESQUHYDRATE ) [Concomitant]
  9. AMIODARONE HYDROCHLORIDE (AMIODARONE HYRDOCHLORIDE) [Concomitant]
  10. ALLOPURINOL [Concomitant]
  11. BISOPROLOL FUMARATE (BISOPROLOL FUMARATE) [Concomitant]
  12. KANRENOL [Suspect]

REACTIONS (6)
  - Hyperkalaemia [None]
  - Renal failure acute [None]
  - Incorrect dose administered [None]
  - Drug interaction [None]
  - Intentional drug misuse [None]
  - Treatment noncompliance [None]
